FAERS Safety Report 5367411-1 (Version None)
Quarter: 2007Q2

REPORT INFORMATION
  Report Type: 
  Country: None (occurrence: None)
  Receive Date: 20070619
  Receipt Date: 20070611
  Transmission Date: 20071010
  Serious: Yes (Death)
  Sender: FDA-Public Use
  Company Number: 2007AL002384

PATIENT
  Age: 38 Year
  Sex: Male

DRUGS (4)
  1. MIRTAZAPINE       (AMIDE) [Suspect]
     Indication: DEPRESSION
     Dosage: 30 MG;QD;PO
     Route: 048
     Dates: start: 20070404, end: 20070418
  2. IBUPROFEN [Concomitant]
  3. PARACETAMOL [Concomitant]
  4. ZOPICLONE [Concomitant]

REACTIONS (3)
  - ANXIETY [None]
  - COMPLETED SUICIDE [None]
  - INSOMNIA [None]
